FAERS Safety Report 7630331-3 (Version None)
Quarter: 2011Q3

REPORT INFORMATION
  Report Type: 
  Country: None (occurrence: None)
  Receive Date: 20110722
  Receipt Date: 20110715
  Transmission Date: 20111222
  Serious: No
  Sender: FDA-Public Use
  Company Number: US-BAYER-2011-062433

PATIENT
  Sex: Female

DRUGS (3)
  1. YAZ [Suspect]
     Dosage: UNK
     Dates: start: 20090601, end: 20091101
  2. YASMIN [Suspect]
     Dosage: UNK
     Dates: start: 20090601, end: 20091101
  3. DROSPIRENONE AND ETHINYL ESTRADIOL [Suspect]
     Dosage: UNK
     Dates: start: 20090601, end: 20091101

REACTIONS (3)
  - PAIN [None]
  - EMOTIONAL DISTRESS [None]
  - INJURY [None]
